FAERS Safety Report 20459005 (Version 1)
Quarter: 2022Q1

REPORT INFORMATION
  Report Type: Spontaneous
  Country: US (occurrence: US)
  Receive Date: 20220211
  Receipt Date: 20220211
  Transmission Date: 20220423
  Serious: Yes (Other)
  Sender: FDA-Public Use
  Company Number: US-CELLTRION INC.-2022US001333

PATIENT

DRUGS (2)
  1. TRUXIMA [Suspect]
     Active Substance: RITUXIMAB-ABBS
     Indication: Burkitt^s lymphoma
     Dosage: 600 MG Q21 DAYS
  2. TRUXIMA [Suspect]
     Active Substance: RITUXIMAB-ABBS
     Indication: Post transplant lymphoproliferative disorder

REACTIONS (2)
  - Post transplant lymphoproliferative disorder [Unknown]
  - Off label use [Unknown]
